FAERS Safety Report 17819357 (Version 1)
Quarter: 2020Q2

REPORT INFORMATION
  Report Type: Spontaneous
  Country: CA (occurrence: CA)
  Receive Date: 20200523
  Receipt Date: 20200523
  Transmission Date: 20200714
  Serious: Yes (Other)
  Sender: FDA-Public Use
  Company Number: CA-TEVA-2020-CA-1237971

PATIENT
  Sex: Male

DRUGS (2)
  1. PREDNISONE. [Suspect]
     Active Substance: PREDNISONE
     Dosage: 15 MILLIGRAM DAILY;
     Route: 065
  2. XELJANZ [Suspect]
     Active Substance: TOFACITINIB CITRATE
     Indication: COLITIS ULCERATIVE
     Dosage: 10 MILLIGRAM DAILY;
     Route: 048
     Dates: start: 20200203

REACTIONS (5)
  - Anal incontinence [Unknown]
  - Defaecation urgency [Unknown]
  - Haematochezia [Unknown]
  - Colitis ulcerative [Not Recovered/Not Resolved]
  - Proctalgia [Unknown]

NARRATIVE: CASE EVENT DATE: 2020
